FAERS Safety Report 7805315-2 (Version None)
Quarter: 2011Q4

REPORT INFORMATION
  Report Type: 
  Country: None (occurrence: None)
  Receive Date: 20111010
  Receipt Date: 20110930
  Transmission Date: 20120403
  Serious: Yes (Hospitalization)
  Sender: FDA-Public Use
  Company Number: DK-TEVA-303194ISR

PATIENT
  Sex: Female

DRUGS (3)
  1. METFORMIN HYDROCHLORIDE [Suspect]
     Dosage: UNK
  2. GALVUS [Suspect]
     Indication: TYPE 2 DIABETES MELLITUS
     Dosage: 50 MG, BID
     Dates: start: 20101101
  3. GLIMEPIRIDE [Suspect]
     Indication: TYPE 2 DIABETES MELLITUS
     Dosage: UNK

REACTIONS (2)
  - TACHYCARDIA [None]
  - VENTRICULAR FIBRILLATION [None]
